FAERS Safety Report 6527522-1 (Version None)
Quarter: 2010Q1

REPORT INFORMATION
  Report Type: 
  Country: None (occurrence: None)
  Receive Date: 20100105
  Receipt Date: 20091230
  Transmission Date: 20100710
  Serious: Yes (Other)
  Sender: FDA-Public Use
  Company Number: US-JNJFOC-20090701098

PATIENT
  Sex: Female
  Weight: 68.04 kg

DRUGS (9)
  1. FENTANYL [Suspect]
     Indication: BACK PAIN
     Route: 062
  2. FENTANYL [Suspect]
     Indication: ARTHRALGIA
     Route: 062
  3. FENTANYL [Suspect]
     Indication: BACK PAIN
     Route: 062
  4. FENTANYL [Suspect]
     Indication: ARTHRALGIA
     Route: 062
  5. HYDROCODONE [Concomitant]
     Indication: BREAKTHROUGH PAIN
     Route: 048
  6. NEURONTIN [Concomitant]
     Indication: NEURALGIA
     Route: 048
  7. PLENDIL [Concomitant]
     Indication: DEPRESSION
     Route: 048
  8. BACLOFEN [Concomitant]
     Indication: MUSCLE SPASMS
     Route: 048
  9. ATENOLOL [Concomitant]
     Indication: CARDIAC DISORDER
     Route: 048

REACTIONS (7)
  - ANXIETY [None]
  - ARTHRALGIA [None]
  - CEREBROVASCULAR ACCIDENT [None]
  - DEPRESSION [None]
  - MALAISE [None]
  - OEDEMA PERIPHERAL [None]
  - WRONG TECHNIQUE IN DRUG USAGE PROCESS [None]
